FAERS Safety Report 14029977 (Version 1)
Quarter: 2017Q4

REPORT INFORMATION
  Report Type: Report from Study
  Country: US (occurrence: US)
  Receive Date: 20171002
  Receipt Date: 20171002
  Transmission Date: 20180321
  Serious: Yes (Life-Threatening, Other)
  Sender: FDA-Public Use
  Company Number: US-SUNOVION-2017SUN004291

PATIENT
  Sex: Female
  Weight: 56 kg

DRUGS (13)
  1. INDACATEROL AND GLYCOPYRROLATE [Suspect]
     Active Substance: GLYCOPYRROLATE\INDACATEROL MALEATE
     Indication: CHRONIC OBSTRUCTIVE PULMONARY DISEASE
     Dosage: 1 DF (110/50), QD
     Route: 055
     Dates: start: 201703
  2. AEROLIN [Concomitant]
     Active Substance: ALBUTEROL
  3. CLENIL [Concomitant]
     Active Substance: BECLOMETHASONE DIPROPIONATE
  4. FINICORT [Concomitant]
  5. SEEBRI [Concomitant]
     Active Substance: GLYCOPYRRONIUM
  6. RELVAR [Concomitant]
     Active Substance: FLUTICASONE FUROATE\VILANTEROL TRIFENATATE
     Dosage: 200/25 UG
  7. BAMIFIX [Concomitant]
     Active Substance: BAMIFYLLINE HYDROCHLORIDE
  8. PREDNISONA [Concomitant]
     Active Substance: PREDNISONE
  9. ALENIA [Concomitant]
     Active Substance: BUDESONIDE\FORMOTEROL FUMARATE
  10. VOLTAREN [Concomitant]
     Active Substance: DICLOFENAC SODIUM
  11. BEROTEC [Suspect]
     Active Substance: FENOTEROL HYDROBROMIDE
     Indication: PRODUCT USED FOR UNKNOWN INDICATION
     Route: 048
  12. INDACATEROL AND GLYCOPYRROLATE [Suspect]
     Active Substance: GLYCOPYRROLATE\INDACATEROL MALEATE
     Indication: EMPHYSEMA
     Dosage: UNK, BID
     Route: 055
  13. MONTELAIR [Concomitant]
     Active Substance: MONTELUKAST SODIUM

REACTIONS (18)
  - Pain [Unknown]
  - Emphysema [Unknown]
  - Tremor [Unknown]
  - Movement disorder [Unknown]
  - Weight decreased [Unknown]
  - Oxygen saturation decreased [Recovering/Resolving]
  - Inappropriate schedule of drug administration [Unknown]
  - Aphasia [Unknown]
  - Dyspnoea [Unknown]
  - Feeling abnormal [Unknown]
  - Malaise [Unknown]
  - Weight increased [Unknown]
  - Head discomfort [Recovered/Resolved]
  - Drug prescribing error [Unknown]
  - Decreased appetite [Unknown]
  - Body surface area decreased [Unknown]
  - Muscular weakness [Unknown]
  - Fatigue [Unknown]
